FAERS Safety Report 24615189 (Version 4)
Quarter: 2025Q4

REPORT INFORMATION
  Report Type: Spontaneous
  Country: US (occurrence: US)
  Receive Date: 20241113
  Receipt Date: 20251121
  Transmission Date: 20260117
  Serious: No
  Sender: NOVO NORDISK
  Company Number: US-NOVOPROD-1277811

PATIENT
  Age: 62 Year
  Sex: Female

DRUGS (6)
  1. NOVOLOG MIX 70/30 [Suspect]
     Active Substance: INSULIN ASPART
     Indication: Type 2 diabetes mellitus
     Dosage: 10-30 UNITS 3-5 TIMES A DAY
     Route: 058
  2. NOVOLOG MIX 70/30 [Suspect]
     Active Substance: INSULIN ASPART
     Dosage: 10-30 UNITS 3 OR 4 TIMES A DAY
     Route: 058
     Dates: start: 2020
  3. NOVOLOG MIX 70/30 [Suspect]
     Active Substance: INSULIN ASPART
     Dosage: 40 UNITS
     Route: 058
     Dates: start: 20240930
  4. TRESIBA [Suspect]
     Active Substance: INSULIN DEGLUDEC
     Indication: Type 2 diabetes mellitus
     Dosage: 30-60 UNITS EACH MORNING.
     Route: 058
  5. TRESIBA [Suspect]
     Active Substance: INSULIN DEGLUDEC
     Dosage: 30-40 UNITS ONCE A DAY
     Route: 058
     Dates: start: 2020
  6. TRESIBA [Suspect]
     Active Substance: INSULIN DEGLUDEC
     Dosage: 40 UNITS
     Route: 058
     Dates: start: 20240930

REACTIONS (7)
  - Thinking abnormal [Unknown]
  - Blood glucose increased [Not Recovered/Not Resolved]
  - Product odour abnormal [Unknown]
  - Drug ineffective [Not Recovered/Not Resolved]
  - Wrong technique in product usage process [Unknown]
  - Product storage error [Unknown]
  - Incorrect dose administered [Not Recovered/Not Resolved]

NARRATIVE: CASE EVENT DATE: 20240804
